FAERS Safety Report 5149970-7 (Version None)
Quarter: 2006Q4

REPORT INFORMATION
  Report Type: 
  Country: None (occurrence: None)
  Receive Date: 20061108
  Receipt Date: 20061028
  Transmission Date: 20070319
  Serious: Yes (Other)
  Sender: FDA-Public Use
  Company Number: 2006049963

PATIENT

DRUGS (6)
  1. CADUET [Suspect]
     Indication: HYPERLIPIDAEMIA
     Dosage: 5 MG/ 20 MG
     Dates: start: 20051110
  2. CADUET [Suspect]
     Indication: HYPERTENSION
     Dosage: 5 MG/ 20 MG
     Dates: start: 20051110
  3. METHOTREXATE [Concomitant]
  4. PREDNISONE TAB [Concomitant]
  5. CALCIUM         (CALCIUM) [Concomitant]
  6. CENTRUM SILVER [Concomitant]

REACTIONS (3)
  - CONFUSIONAL STATE [None]
  - DRUG INEFFECTIVE [None]
  - MEMORY IMPAIRMENT [None]
